APPROVED DRUG PRODUCT: ABIRATERONE ACETATE
Active Ingredient: ABIRATERONE ACETATE
Strength: 500MG
Dosage Form/Route: TABLET;ORAL
Application: A208327 | Product #002 | TE Code: AB
Applicant: AMNEAL PHARMACEUTICALS OF NEW YORK LLC
Approved: Dec 23, 2020 | RLD: No | RS: No | Type: RX